FAERS Safety Report 10977677 (Version 1)
Quarter: 2015Q1

REPORT INFORMATION
  Report Type: Spontaneous
  Country: None (occurrence: None)
  Receive Date: 20150226
  Receipt Date: 20150226
  Transmission Date: 20150721
  Serious: No
  Sender: FDA-Public Use
  Company Number: TPA2009A01317

PATIENT
  Age: 42 Year
  Sex: Male
  Weight: 113.6 kg

DRUGS (5)
  1. LIPITOR [Concomitant]
     Active Substance: ATORVASTATIN CALCIUM
  2. COLCHICINE. [Concomitant]
     Active Substance: COLCHICINE
  3. NORVASC [Concomitant]
     Active Substance: AMLODIPINE BESYLATE
  4. ULORIC [Suspect]
     Active Substance: FEBUXOSTAT
     Indication: BLOOD URIC ACID INCREASED
     Route: 048
     Dates: start: 20090404, end: 20090410
  5. DIOVAN [Concomitant]
     Active Substance: VALSARTAN

REACTIONS (1)
  - Gout [None]
